FAERS Safety Report 13959109 (Version 1)
Quarter: 2017Q3

REPORT INFORMATION
  Report Type: Spontaneous
  Country: US (occurrence: US)
  Receive Date: 20170912
  Receipt Date: 20170912
  Transmission Date: 20171128
  Serious: No
  Sender: FDA-Public Use
  Company Number: US-JNJFOC-20170826176

PATIENT
  Age: 36 Year
  Sex: Female

DRUGS (4)
  1. ZYRTEC ALLERGY [Suspect]
     Active Substance: CETIRIZINE HYDROCHLORIDE
     Indication: URTICARIA
     Dosage: ABOUT 10 TABLETS, ONE TIME
     Route: 065
     Dates: start: 20170825
  2. ZYRTEC ALLERGY [Suspect]
     Active Substance: CETIRIZINE HYDROCHLORIDE
     Indication: MULTIPLE ALLERGIES
     Dosage: ONE IN THE MORNING AND ONE IN THE EVENING
     Route: 065
     Dates: start: 201708
  3. ZYRTEC ALLERGY [Suspect]
     Active Substance: CETIRIZINE HYDROCHLORIDE
     Indication: URTICARIA
     Dosage: ONE IN THE MORNING AND ONE IN THE EVENING
     Route: 065
     Dates: start: 201708
  4. ZYRTEC ALLERGY [Suspect]
     Active Substance: CETIRIZINE HYDROCHLORIDE
     Indication: MULTIPLE ALLERGIES
     Dosage: ABOUT 10 TABLETS, ONE TIME
     Route: 065
     Dates: start: 20170825

REACTIONS (2)
  - Product use in unapproved indication [Unknown]
  - Intentional overdose [Unknown]

NARRATIVE: CASE EVENT DATE: 201708
